FAERS Safety Report 9348118 (Version 1)
Quarter: 2013Q2

REPORT INFORMATION
  Report Type: Report from Study
  Country: US (occurrence: US)
  Receive Date: 20130614
  Receipt Date: 20130614
  Transmission Date: 20140414
  Serious: Yes (Other)
  Sender: FDA-Public Use
  Company Number: US-JNJFOC-20130314871

PATIENT
  Age: 56 Year
  Sex: Female
  Weight: 72.58 kg

DRUGS (13)
  1. REMICADE [Suspect]
     Indication: ARTHRITIS
     Route: 042
     Dates: start: 20130312, end: 20130312
  2. REMICADE [Suspect]
     Indication: ARTHRITIS
     Route: 042
     Dates: start: 2001
  3. REMICADE [Suspect]
     Indication: CROHN^S DISEASE
     Route: 042
     Dates: start: 20130312, end: 20130312
  4. REMICADE [Suspect]
     Indication: CROHN^S DISEASE
     Route: 042
     Dates: start: 2001
  5. LANTUS [Concomitant]
     Indication: DIABETES MELLITUS
     Route: 065
     Dates: start: 2003
  6. NOVOLOG [Concomitant]
     Indication: DIABETES MELLITUS
     Route: 065
     Dates: start: 2003
  7. ZOLOFT [Concomitant]
     Indication: DEPRESSION
     Route: 065
     Dates: start: 2003
  8. SYNTHROID [Concomitant]
     Indication: THYROID DISORDER
     Route: 065
     Dates: start: 2003
  9. TRIAMTERENE/HCTZ [Concomitant]
     Indication: HYPERTENSION
     Route: 065
     Dates: start: 2003
  10. NASONEX [Concomitant]
     Indication: HYPERSENSITIVITY
     Route: 065
     Dates: start: 2003
  11. ADDERALL [Concomitant]
     Indication: ATTENTION DEFICIT/HYPERACTIVITY DISORDER
     Route: 065
  12. CALCIUM [Concomitant]
     Route: 065
  13. VITAMIN A [Concomitant]
     Route: 065

REACTIONS (5)
  - Drug ineffective [Not Recovered/Not Resolved]
  - Blood glucose increased [Unknown]
  - Serum sickness-like reaction [Recovered/Resolved]
  - Abdominal pain [Recovered/Resolved]
  - Constipation [Recovered/Resolved]
